FAERS Safety Report 9960000 (Version 1)
Quarter: 2014Q1

REPORT INFORMATION
  Report Type: Spontaneous
  Country: BR (occurrence: None)
  Receive Date: 20140227
  Receipt Date: 20140227
  Transmission Date: 20141002
  Serious: Yes (Hospitalization, Other)
  Sender: FDA-Public Use
  Company Number: AUR-APL-2014-02036

PATIENT
  Age: 45 Year
  Sex: Male

DRUGS (8)
  1. ATENOLOL [Suspect]
     Indication: HYPERTENSION
     Dosage: 1 D
     Route: 048
     Dates: start: 1999
  2. OMEPRAZOLE [Suspect]
     Indication: GASTROOESOPHAGEAL REFLUX DISEASE
     Route: 048
     Dates: start: 201307
  3. ROSUCOR [Suspect]
     Indication: BLOOD CHOLESTEROL ABNORMAL
     Route: 048
     Dates: start: 201307
  4. BRILINTA [Suspect]
     Indication: INFARCTION
     Route: 048
     Dates: start: 201307
  5. SUSTRATE (PROPATYLNITRATE) [Concomitant]
  6. ASPIRINA (ACETYLSALICYLIC ACID) [Concomitant]
  7. PREVENT (TINIDAZOLE) [Concomitant]
  8. RIVOTTRIL (CLONAZEPAM) [Concomitant]

REACTIONS (5)
  - Gastrooesophageal reflux disease [None]
  - Myocardial infarction [None]
  - Cardiac disorder [None]
  - Blood cholesterol abnormal [None]
  - Weight decreased [None]
